FAERS Safety Report 4741518-1 (Version None)
Quarter: 2005Q3

REPORT INFORMATION
  Report Type: 
  Country: None (occurrence: None)
  Receive Date: 20050808
  Receipt Date: 20050525
  Transmission Date: 20060218
  Serious: Yes (Hospitalization)
  Sender: FDA-Public Use
  Company Number: 2005FR-00204

PATIENT
  Age: 52 Year
  Sex: Male

DRUGS (15)
  1. ASPIRIN [Suspect]
     Indication: PROPHYLAXIS
     Dosage: 75 MG
     Route: 048
     Dates: end: 20050503
  2. CLOPIDOGREL BISULFATE [Suspect]
     Indication: PROPHYLAXIS
     Dosage: 75 MG
     Route: 048
     Dates: end: 20050503
  3. MINOXIDIL [Concomitant]
  4. METOPROLOL [Concomitant]
  5. PHOSEX [Concomitant]
  6. RANITIDINE [Concomitant]
  7. RAMIPRIL [Concomitant]
  8. IRBESARTAN [Concomitant]
  9. SIMVASTATIN [Concomitant]
  10. PREDNISOLONE [Concomitant]
  11. AZATHIOPRINE [Concomitant]
  12. TACROLIMUS [Concomitant]
  13. CO-TRIMOXAZOLE [Concomitant]
  14. NIFEDIPINE [Concomitant]
  15. DOXAZOSIN [Concomitant]

REACTIONS (3)
  - DUODENAL ULCER [None]
  - GASTROINTESTINAL HAEMORRHAGE [None]
  - OESOPHAGITIS [None]
